FAERS Safety Report 5667506-9 (Version None)
Quarter: 2008Q1

REPORT INFORMATION
  Report Type: 
  Country: None (occurrence: None)
  Receive Date: 20080315
  Receipt Date: 20080125
  Transmission Date: 20080703
  Serious: No
  Sender: FDA-Public Use
  Company Number: US-ABBOTT-08P-163-0435068-00

PATIENT
  Sex: Female
  Weight: 59.928 kg

DRUGS (4)
  1. HUMIRA [Suspect]
     Indication: CROHN'S DISEASE
     Route: 058
     Dates: start: 20080111
  2. HUMIRA [Suspect]
     Route: 058
  3. WARFARIN SODIUM [Concomitant]
     Indication: THROMBOSIS
  4. METHADONE [Concomitant]
     Indication: PAIN

REACTIONS (6)
  - ACCIDENTAL EXPOSURE [None]
  - FATIGUE [None]
  - MALAISE [None]
  - PAIN [None]
  - RESPIRATORY TRACT CONGESTION [None]
  - RHINORRHOEA [None]
